FAERS Safety Report 23726187 (Version 1)
Quarter: 2024Q2

REPORT INFORMATION
  Report Type: Other
  Country: GB (occurrence: GB)
  Receive Date: 20240410
  Receipt Date: 20240410
  Transmission Date: 20240716
  Serious: Yes (Other)
  Sender: FDA-Public Use
  Company Number: None

PATIENT
  Age: 36 Year
  Sex: Female

DRUGS (2)
  1. MIRABEGRON [Suspect]
     Active Substance: MIRABEGRON
     Indication: Hypertonic bladder
     Dosage: 50 MG, ONCE DAILY, (MORNING)
     Route: 065
     Dates: start: 20240328, end: 20240330
  2. OMEPRAZOLE [Concomitant]
     Active Substance: OMEPRAZOLE
     Indication: Dyspepsia
     Route: 065
     Dates: start: 20231006, end: 20240330

REACTIONS (2)
  - Angina pectoris [Not Recovered/Not Resolved]
  - Pain [Unknown]
